FAERS Safety Report 11345294 (Version 1)
Quarter: 2015Q3

REPORT INFORMATION
  Report Type: Spontaneous
  Country: US (occurrence: None)
  Receive Date: 20150805
  Receipt Date: 20150805
  Transmission Date: 20151125
  Serious: No
  Sender: FDA-Public Use
  Company Number: None

PATIENT
  Age: 63 Year
  Sex: Female

DRUGS (1)
  1. PHENYTOIN. [Suspect]
     Active Substance: PHENYTOIN
     Indication: CONVULSION PROPHYLAXIS
     Route: 048
     Dates: start: 20141111, end: 20141125

REACTIONS (1)
  - Pyrexia [None]

NARRATIVE: CASE EVENT DATE: 20141116
